FAERS Safety Report 8747779 (Version 2)
Quarter: 2012Q4

REPORT INFORMATION
  Report Type: 
  Country: TR (occurrence: TR)
  Receive Date: 20120827
  Receipt Date: 20120829
  Transmission Date: 20130627
  Serious: Yes (Life-Threatening, Other)
  Sender: FDA-Public Use
  Company Number: PHHY2012TR073004

PATIENT
  Age: 13 Year
  Sex: Female

DRUGS (4)
  1. METHOTREXATE [Suspect]
     Indication: NON-HODGKIN^S LYMPHOMA
     Dosage: 5 g/m^2
  2. CYTARABINE [Concomitant]
     Indication: NON-HODGKIN^S LYMPHOMA
     Dosage: 100 mg/m2, UNK
  3. ETOPOSIDE [Concomitant]
     Indication: NON-HODGKIN^S LYMPHOMA
     Dosage: 100 mg/m2, UNK
  4. FOLINIC ACID [Concomitant]
     Indication: NON-HODGKIN^S LYMPHOMA
     Dosage: 15 mg/m2, Q6H

REACTIONS (21)
  - Mucosal inflammation [Recovering/Resolving]
  - Tumour lysis syndrome [Unknown]
  - Pulmonary oedema [Unknown]
  - Intra-abdominal haemorrhage [Unknown]
  - Febrile neutropenia [Unknown]
  - Fungal oesophagitis [Unknown]
  - Dysphagia [Unknown]
  - Chest pain [Unknown]
  - Thoracic haemorrhage [Unknown]
  - Renal failure acute [Unknown]
  - Haemoglobin decreased [Unknown]
  - Platelet count decreased [Unknown]
  - Blister [Unknown]
  - Tachypnoea [Unknown]
  - Abdominal distension [Unknown]
  - Hyperaemia [Unknown]
  - Pruritus [Unknown]
  - Pleural haemorrhage [None]
  - Off label use [None]
  - Toxicity to various agents [None]
  - Hypokalaemia [None]
